FAERS Safety Report 4989519-2 (Version None)
Quarter: 2006Q2

REPORT INFORMATION
  Report Type: 
  Country: None (occurrence: None)
  Receive Date: 20060426
  Receipt Date: 20060407
  Transmission Date: 20061013
  Serious: Yes (Hospitalization, Other)
  Sender: FDA-Public Use
  Company Number: US200604000273

PATIENT
  Age: 75 Year
  Sex: Female
  Weight: 77.1 kg

DRUGS (5)
  1. FORTEO [Suspect]
     Indication: OSTEOPOROSIS
     Dosage: 20 UG/DAY, DAY (1/D)
  2. FORTEO PEN (FORTEO PEN) [Concomitant]
  3. VASOTEC [Concomitant]
  4. TOPROL-XL [Concomitant]
  5. PIROXICAM [Concomitant]

REACTIONS (3)
  - ARTHRALGIA [None]
  - FALL [None]
  - PUBIC RAMI FRACTURE [None]
